FAERS Safety Report 18324322 (Version 1)
Quarter: 2020Q3

REPORT INFORMATION
  Report Type: Spontaneous
  Country: FR (occurrence: FR)
  Receive Date: 20200929
  Receipt Date: 20200929
  Transmission Date: 20201103
  Serious: Yes (Death, Hospitalization)
  Sender: FDA-Public Use
  Company Number: NVSC2020FR257420

PATIENT
  Age: 72 Year
  Sex: Male
  Weight: 98 kg

DRUGS (4)
  1. CLOXACILLIN [Suspect]
     Active Substance: CLOXACILLIN
     Dosage: 12 G, QD
     Route: 042
     Dates: start: 20200824
  2. CLOXACILLIN [Suspect]
     Active Substance: CLOXACILLIN
     Indication: ENDOCARDITIS
     Dosage: 6 G, QD
     Route: 042
     Dates: start: 20200818, end: 20200823
  3. RIFAMPICIN [Suspect]
     Active Substance: RIFAMPIN
     Dosage: 1200 MG, QD
     Route: 042
     Dates: start: 20200907
  4. RIFAMPICIN [Suspect]
     Active Substance: RIFAMPIN
     Indication: ENDOCARDITIS
     Dosage: 1200 MG, QD
     Route: 042
     Dates: start: 20200824

REACTIONS (3)
  - Cholestasis [Not Recovered/Not Resolved]
  - Jaundice [Not Recovered/Not Resolved]
  - Hyperbilirubinaemia [Not Recovered/Not Resolved]

NARRATIVE: CASE EVENT DATE: 20200904
